FAERS Safety Report 21058178 (Version 1)
Quarter: 2022Q3

REPORT INFORMATION
  Report Type: Report from Study
  Country: EG (occurrence: EG)
  Receive Date: 20220708
  Receipt Date: 20220708
  Transmission Date: 20221026
  Serious: Yes (Other)
  Sender: FDA-Public Use
  Company Number: EG-NOVARTISPH-NVSC2022EG138364

PATIENT
  Age: 45 Year
  Sex: Female

DRUGS (5)
  1. HYRIMOZ [Suspect]
     Active Substance: ADALIMUMAB-ADAZ
     Indication: Ankylosing spondylitis
     Route: 058
  2. HYRIMOZ [Suspect]
     Active Substance: ADALIMUMAB-ADAZ
     Dosage: 40 MG, Q2W
     Route: 058
     Dates: start: 20220131, end: 20220301
  3. AVEROMILAN [Concomitant]
     Indication: Fibromyalgia
     Dosage: 4 DOSAGE FORM, QD (FROM 6 YEARS)
     Route: 065
  4. CONVENTIN [Concomitant]
     Indication: Fibromyalgia
     Dosage: 1 DOSAGE FORM, QD (ONE TABLET AT NIGHT) (FROM 4 MONTHS)
     Route: 065
  5. LEVOTHYROXINE [Concomitant]
     Active Substance: LEVOTHYROXINE
     Indication: Hypothyroidism
     Dosage: 1 DOSAGE FORM, QD (ONE TAB IN MORNING) FROM 7 YEARS
     Route: 065

REACTIONS (3)
  - Ankylosing spondylitis [Recovering/Resolving]
  - Condition aggravated [Recovering/Resolving]
  - Drug ineffective [Recovered/Resolved]

NARRATIVE: CASE EVENT DATE: 20220131
